FAERS Safety Report 8748568 (Version 2)
Quarter: 2012Q4

REPORT INFORMATION
  Report Type: 
  Country: US (occurrence: US)
  Receive Date: 20120827
  Receipt Date: 20120913
  Transmission Date: 20130627
  Serious: Yes (Other)
  Sender: FDA-Public Use
  Company Number: US-PFIZER INC-2012208792

PATIENT
  Age: 54 Year
  Sex: Female
  Weight: 80 kg

DRUGS (8)
  1. LIPITOR [Suspect]
     Indication: BLOOD CHOLESTEROL INCREASED
     Dosage: 40 mg, daily
     Route: 048
  2. ZOLOFT [Suspect]
     Indication: DEPRESSION
     Dosage: 50 mg, daily
     Route: 048
  3. MICARDIS [Concomitant]
     Indication: HYPERTENSION
     Dosage: 80 mg,daily
  4. ASPIRIN [Concomitant]
     Indication: ANTICOAGULANT THERAPY
     Dosage: 81 mg,daily
  5. CELEBREX [Concomitant]
     Indication: ARTHRITIS
     Dosage: UNK
  6. CELEBREX [Concomitant]
     Indication: PAIN
  7. CELEBREX [Concomitant]
     Indication: MUSCULOSKELETAL STIFFNESS
  8. METFORMIN [Concomitant]
     Indication: DIABETES MELLITUS
     Dosage: 500 mg,daily

REACTIONS (1)
  - Osteoporosis [Unknown]
